FAERS Safety Report 20213915 (Version 3)
Quarter: 2024Q1

REPORT INFORMATION
  Report Type: Report from Study
  Country: BR (occurrence: BR)
  Receive Date: 20211221
  Receipt Date: 20240103
  Transmission Date: 20240410
  Serious: Yes (Other)
  Sender: FDA-Public Use
  Company Number: BR-TAKEDA-2021TUS079062

PATIENT
  Sex: Male

DRUGS (3)
  1. HEMO-8R [Suspect]
     Active Substance: ANTIHEMOPHILIC FACTOR, HUMAN RECOMBINANT
     Indication: Factor VIII deficiency
     Dosage: 250 INTERNATIONAL UNIT, TID
     Route: 042
     Dates: start: 202101
  2. HEMO-8R [Suspect]
     Active Substance: ANTIHEMOPHILIC FACTOR, HUMAN RECOMBINANT
     Dosage: 250 INTERNATIONAL UNIT, 3/WEEK
     Route: 042
     Dates: start: 20210201, end: 202112
  3. HEMO-8R [Suspect]
     Active Substance: ANTIHEMOPHILIC FACTOR, HUMAN RECOMBINANT
     Dosage: UNK
     Route: 042
     Dates: end: 202207

REACTIONS (8)
  - Factor VIII inhibition [Unknown]
  - Haemarthrosis [Recovering/Resolving]
  - Fall [Recovering/Resolving]
  - Head injury [Recovering/Resolving]
  - Joint injury [Recovering/Resolving]
  - Joint swelling [Recovering/Resolving]
  - Abscess [Not Recovered/Not Resolved]
  - Drug ineffective [Unknown]
